FAERS Safety Report 17388938 (Version 1)
Quarter: 2020Q1

REPORT INFORMATION
  Report Type: Spontaneous
  Country: US (occurrence: US)
  Receive Date: 20200207
  Receipt Date: 20200207
  Transmission Date: 20200409
  Serious: Yes (Hospitalization)
  Sender: FDA-Public Use
  Company Number: US-PFIZER INC-2019341880

PATIENT
  Age: 68 Year
  Sex: Female
  Weight: 93 kg

DRUGS (3)
  1. VFEND [Suspect]
     Active Substance: VORICONAZOLE
     Indication: FUNGAL INFECTION
  2. VFEND [Suspect]
     Active Substance: VORICONAZOLE
     Indication: LUNG TRANSPLANT
     Dosage: 200 MG, 2X/DAY
     Route: 048
     Dates: start: 20190728
  3. VFEND [Suspect]
     Active Substance: VORICONAZOLE
     Indication: INFECTION

REACTIONS (2)
  - Pneumonia [Recovering/Resolving]
  - Cough [Unknown]

NARRATIVE: CASE EVENT DATE: 202001
